FAERS Safety Report 10182344 (Version 1)
Quarter: 2014Q2

REPORT INFORMATION
  Report Type: Spontaneous
  Country: US (occurrence: None)
  Receive Date: 20140519
  Receipt Date: 20140519
  Transmission Date: 20141212
  Serious: Yes (Death)
  Sender: FDA-Public Use
  Company Number: None

PATIENT
  Age: 84 Year
  Sex: Female
  Weight: 73.03 kg

DRUGS (8)
  1. XARELTO [Suspect]
     Indication: CEREBROVASCULAR ACCIDENT PROPHYLAXIS
     Dosage: 1 PILL QD ORAL
     Dates: start: 20130718, end: 20131219
  2. XARELTO [Suspect]
     Indication: THROMBOSIS PROPHYLAXIS
     Dosage: 1 PILL QD ORAL
     Dates: start: 20130718, end: 20131219
  3. XARELTO [Suspect]
     Indication: DISEASE RECURRENCE
     Dosage: 1 PILL QD ORAL
     Dates: start: 20130718, end: 20131219
  4. DICLOXACILLIN [Concomitant]
  5. METOLAZONE [Concomitant]
  6. SPIRONOLACTONE [Concomitant]
  7. CALCIUM [Concomitant]
  8. ZYPREXA [Concomitant]

REACTIONS (6)
  - Blister [None]
  - Sudden death [None]
  - Pulmonary embolism [None]
  - Deep vein thrombosis [None]
  - Skin lesion [None]
  - Skin induration [None]
